FAERS Safety Report 9780226 (Version 1)
Quarter: 2013Q4

REPORT INFORMATION
  Report Type: Spontaneous
  Country: FR (occurrence: FR)
  Receive Date: 20131223
  Receipt Date: 20131223
  Transmission Date: 20140711
  Serious: Yes (Life-Threatening)
  Sender: FDA-Public Use
  Company Number: PHHY2013FR149246

PATIENT
  Age: 90 Year
  Sex: Female

DRUGS (4)
  1. LAMISIL [Suspect]
     Dosage: UNK UKN, UNK
     Route: 048
  2. MIANSERIN [Suspect]
     Dosage: UNK UKN, UNK
     Route: 048
  3. LEVOTHYROX [Concomitant]
     Dosage: UNK UKN, UNK
  4. SERESTA [Concomitant]
     Dosage: UNK UKN, UNK

REACTIONS (2)
  - Agranulocytosis [Unknown]
  - Febrile neutropenia [Unknown]
